FAERS Safety Report 4280614-2 (Version None)
Quarter: 2004Q1

REPORT INFORMATION
  Report Type: 
  Country: None (occurrence: None)
  Receive Date: 20040127
  Receipt Date: 20040120
  Transmission Date: 20041129
  Serious: Yes (Death)
  Sender: FDA-Public Use
  Company Number: TPA2004A00063

PATIENT
  Age: 83 Year
  Sex: Male
  Weight: 96.1626 kg

DRUGS (1)
  1. ACTOS [Suspect]
     Dosage: PER ORAL
     Route: 048
     Dates: end: 20040116

REACTIONS (1)
  - DEATH [None]
